FAERS Safety Report 17171690 (Version 2)
Quarter: 2020Q1

REPORT INFORMATION
  Report Type: Spontaneous
  Country: US (occurrence: US)
  Receive Date: 20191218
  Receipt Date: 20200113
  Transmission Date: 20200409
  Serious: No
  Sender: FDA-Public Use
  Company Number: US-TEVA-2019-US-1153749

PATIENT
  Sex: Male

DRUGS (1)
  1. SYNRIBO [Suspect]
     Active Substance: OMACETAXINE MEPESUCCINATE
     Indication: CHRONIC MYELOID LEUKAEMIA
     Dosage: 2?56MG/0.73 ML
     Route: 065
     Dates: start: 20191204

REACTIONS (4)
  - Feeling hot [Unknown]
  - Platelet count decreased [Unknown]
  - Injection site pain [Unknown]
  - Vision blurred [Unknown]
